FAERS Safety Report 6510124-0 (Version None)
Quarter: 2009Q4

REPORT INFORMATION
  Report Type: 
  Country: None (occurrence: None)
  Receive Date: 20091222
  Receipt Date: 20091214
  Transmission Date: 20100525
  Serious: Yes (Hospitalization, Disabling, Other)
  Sender: FDA-Public Use
  Company Number: B0579239A

PATIENT
  Sex: Female
  Weight: 68 kg

DRUGS (2)
  1. ARIXTRA [Suspect]
     Indication: THROMBOSIS PROPHYLAXIS
     Dosage: 7.5MG PER DAY
     Route: 058
     Dates: start: 20090605, end: 20090609
  2. EFFERALGAN [Concomitant]
     Indication: PAIN
     Route: 048

REACTIONS (4)
  - DISCOMFORT [None]
  - HAEMATOMA [None]
  - MOBILITY DECREASED [None]
  - MUSCLE HAEMORRHAGE [None]
